FAERS Safety Report 7328868-X (Version None)
Quarter: 2011Q1

REPORT INFORMATION
  Report Type: 
  Country: None (occurrence: None)
  Receive Date: 20110303
  Receipt Date: 20110223
  Transmission Date: 20110831
  Serious: Yes (Disabling)
  Sender: FDA-Public Use
  Company Number: JP-ASTRAZENECA-2011SE08075

PATIENT
  Age: 78 Year
  Sex: Male

DRUGS (4)
  1. ZOLADEX [Suspect]
     Indication: PROSTATE CANCER
     Route: 058
     Dates: start: 20100917
  2. ANTIHYPERTENSIVE [Concomitant]
  3. URIC ACID REDUCING DRUG [Concomitant]
  4. CASODEX [Suspect]
     Indication: PROSTATE CANCER
     Route: 048
     Dates: start: 20100827, end: 20110127

REACTIONS (1)
  - CEREBRAL INFARCTION [None]
